FAERS Safety Report 10748874 (Version 1)
Quarter: 2015Q1

REPORT INFORMATION
  Report Type: Report from Study
  Country: US (occurrence: US)
  Receive Date: 20150129
  Receipt Date: 20150129
  Transmission Date: 20150721
  Serious: Yes (Death, Hospitalization, Other)
  Sender: FDA-Public Use
  Company Number: US-BAYER-2014-087256

PATIENT
  Age: 63 Year
  Sex: Male
  Weight: 68.1 kg

DRUGS (10)
  1. NEXAVAR [Suspect]
     Active Substance: SORAFENIB
     Indication: HEPATIC CANCER STAGE IV
     Dosage: 200 MG, QD
     Route: 048
     Dates: start: 20140507, end: 20140528
  2. PROTONIX [Concomitant]
     Active Substance: PANTOPRAZOLE SODIUM
  3. ACETAMINOPHEN. [Concomitant]
     Active Substance: ACETAMINOPHEN
  4. LACTULOSE. [Concomitant]
     Active Substance: LACTULOSE
     Dosage: 30 G, TID
     Route: 048
  5. THIAMINE [Concomitant]
     Active Substance: THIAMINE
  6. FOLIC ACID. [Concomitant]
     Active Substance: FOLIC ACID
     Dosage: DAILY DOSE 1 MG
     Route: 048
  7. PROPRANOLOL [Concomitant]
     Active Substance: PROPRANOLOL\PROPRANOLOL HYDROCHLORIDE
     Dosage: 10 MG, TID
     Route: 048
  8. NEXAVAR [Suspect]
     Active Substance: SORAFENIB
     Indication: HEPATIC CANCER STAGE IV
     Dosage: 200 MG, QD
     Route: 048
     Dates: start: 20140330, end: 2014
  9. IRON [FERROUS SULFATE] [Concomitant]
  10. PANTOPRAZOLE [Concomitant]
     Active Substance: PANTOPRAZOLE SODIUM
     Dosage: 40 MG, UNK
     Route: 048

REACTIONS (5)
  - Lymphopenia [None]
  - Hepatic cancer metastatic [Fatal]
  - Cholestasis [None]
  - Acute kidney injury [None]
  - Hepatic encephalopathy [None]

NARRATIVE: CASE EVENT DATE: 20140607
